FAERS Safety Report 16560547 (Version 1)
Quarter: 2019Q3

REPORT INFORMATION
  Report Type: Spontaneous
  Country: SA (occurrence: SA)
  Receive Date: 20190711
  Receipt Date: 20190711
  Transmission Date: 20191004
  Serious: Yes (Other)
  Sender: FDA-Public Use
  Company Number: SA-ROCHE-2353674

PATIENT

DRUGS (18)
  1. AZATHIOPRINE. [Concomitant]
     Active Substance: AZATHIOPRINE
     Route: 064
  2. RED BLOOD CELLS, CONCENTRATED [Concomitant]
     Active Substance: HUMAN RED BLOOD CELL
     Dosage: 15 UNITS
     Route: 064
  3. RED BLOOD CELLS, CONCENTRATED [Concomitant]
     Active Substance: HUMAN RED BLOOD CELL
     Dosage: 7 UNITS
     Route: 064
  4. RED BLOOD CELLS, CONCENTRATED [Concomitant]
     Active Substance: HUMAN RED BLOOD CELL
     Dosage: 3 UNITS
     Route: 064
  5. PREDNISONE. [Concomitant]
     Active Substance: PREDNISONE
     Route: 064
  6. PREDNISONE. [Concomitant]
     Active Substance: PREDNISONE
     Route: 064
  7. HUMAN IMMUNOGLOBULIN [Concomitant]
     Active Substance: HUMAN IMMUNOGLOBULIN G
     Dosage: 2 DOSES
     Route: 064
  8. RITUXIMAB. [Suspect]
     Active Substance: RITUXIMAB
     Indication: PRODUCT USED FOR UNKNOWN INDICATION
     Dosage: 4 DOSES
     Route: 064
  9. PREDNISONE. [Concomitant]
     Active Substance: PREDNISONE
     Route: 064
  10. RED BLOOD CELLS, CONCENTRATED [Concomitant]
     Active Substance: HUMAN RED BLOOD CELL
     Dosage: 1
     Route: 064
  11. PREDNISONE. [Concomitant]
     Active Substance: PREDNISONE
     Route: 064
  12. RED BLOOD CELLS, CONCENTRATED [Concomitant]
     Active Substance: HUMAN RED BLOOD CELL
     Route: 064
  13. RED BLOOD CELLS, CONCENTRATED [Concomitant]
     Active Substance: HUMAN RED BLOOD CELL
     Dosage: 2 UNITS
     Route: 064
  14. PREDNISONE. [Concomitant]
     Active Substance: PREDNISONE
     Route: 064
  15. RED BLOOD CELLS, CONCENTRATED [Concomitant]
     Active Substance: HUMAN RED BLOOD CELL
     Dosage: 2 UNITS
     Route: 064
  16. PREDNISONE. [Concomitant]
     Active Substance: PREDNISONE
     Route: 064
  17. PREDNISONE. [Concomitant]
     Active Substance: PREDNISONE
     Route: 064
  18. RED BLOOD CELLS, CONCENTRATED [Concomitant]
     Active Substance: HUMAN RED BLOOD CELL
     Dosage: 2 UNITS
     Route: 064

REACTIONS (2)
  - Foetal exposure during pregnancy [Unknown]
  - Pericardial effusion [Recovered/Resolved]
